FAERS Safety Report 8998108 (Version 6)
Quarter: 2013Q2

REPORT INFORMATION
  Report Type: Spontaneous
  Country: US (occurrence: US)
  Receive Date: 20130104
  Receipt Date: 20130419
  Transmission Date: 20140414
  Serious: Yes (Hospitalization, Disabling, Other)
  Sender: FDA-Public Use
  Company Number: US-009507513-1212USA010558

PATIENT
  Sex: Female

DRUGS (10)
  1. FOSAMAX [Suspect]
     Indication: OSTEOPENIA
     Dosage: 70 MG, QW
     Route: 048
     Dates: start: 200210, end: 200808
  2. FOSAMAX [Suspect]
     Indication: OSTEOPOROSIS
  3. FOSAMAX PLUS D [Suspect]
     Indication: OSTEOPENIA
     Dosage: 70 MG, UNK
     Route: 048
     Dates: end: 200808
  4. FOSAMAX PLUS D [Suspect]
     Indication: OSTEOPOROSIS
  5. ALENDRONATE SODIUM [Suspect]
     Indication: OSTEOPENIA
     Dosage: 70 MG, UNK
     Route: 048
     Dates: start: 20090716, end: 201109
  6. ALENDRONATE SODIUM [Suspect]
     Indication: OSTEOPOROSIS
  7. ACTONEL [Suspect]
     Indication: OSTEOPENIA
     Dosage: 35 MG, UNK
     Route: 048
     Dates: start: 200808, end: 200907
  8. ACTONEL [Suspect]
     Indication: OSTEOPOROSIS
  9. AVANDIA [Concomitant]
     Dosage: UNK
     Dates: start: 2000
  10. SELECTIVE ESTROGEN RECEPTOR MODULATOR (UNSPECIFIED) [Concomitant]
     Dosage: UNK
     Dates: start: 1998, end: 2002

REACTIONS (19)
  - Femur fracture [Not Recovered/Not Resolved]
  - Intramedullary rod insertion [Unknown]
  - Procedural complication [Unknown]
  - Fracture [Unknown]
  - Osteoporosis [Not Recovered/Not Resolved]
  - Low turnover osteopathy [Not Recovered/Not Resolved]
  - Multiple fractures [Not Recovered/Not Resolved]
  - Femur fracture [Not Recovered/Not Resolved]
  - Renal failure acute [Unknown]
  - Haemorrhagic anaemia [Unknown]
  - Hyperlipidaemia [Unknown]
  - Oral surgery [Unknown]
  - Tooth extraction [Unknown]
  - Contusion [Unknown]
  - Enthesopathy [Recovering/Resolving]
  - Foot deformity [Unknown]
  - Intervertebral disc degeneration [Unknown]
  - Bone disorder [Unknown]
  - Drug dependence [Unknown]
